FAERS Safety Report 5980266-7 (Version None)
Quarter: 2008Q4

REPORT INFORMATION
  Report Type: 
  Country: None (occurrence: None)
  Receive Date: 20081205
  Receipt Date: 20081126
  Transmission Date: 20090506
  Serious: Yes (Hospitalization, Other)
  Sender: FDA-Public Use
  Company Number: PHBS2008IT06462

PATIENT
  Age: 10 Year
  Sex: Male

DRUGS (7)
  1. CYCLOSPORINE [Suspect]
     Indication: STEM CELL TRANSPLANT
     Dosage: 2 MG/KG/DAY
  2. CYCLOSPORINE [Suspect]
     Indication: PROPHYLAXIS AGAINST GRAFT VERSUS HOST DISEASE
  3. FLUDARABINE PHOSPHATE [Concomitant]
     Dosage: 30 MG/M2/DAY
  4. CYCLOPHOSPHAMIDE [Concomitant]
     Dosage: 300 MG/M2/DAY
  5. THYMOGLOBULINE                          /NET/ [Concomitant]
     Dosage: 3.75 MG/KG/DAY
  6. METHOTREXATE [Concomitant]
     Dosage: 10 MG/KM2DAY
  7. METHOTREXATE [Concomitant]
     Dosage: 8 MG/M2/DAY

REACTIONS (11)
  - ACUTE GRAFT VERSUS HOST DISEASE IN SKIN [None]
  - CHRONIC GRAFT VERSUS HOST DISEASE [None]
  - EPSTEIN-BARR VIRAEMIA [None]
  - EPSTEIN-BARR VIRUS ASSOCIATED LYMPHOPROLIFERATIVE DISORDER [None]
  - HAEMATOTOXICITY [None]
  - HEPATOMEGALY [None]
  - LYMPHADENOPATHY [None]
  - MUCOSAL INFLAMMATION [None]
  - NODULE [None]
  - PYREXIA [None]
  - SPLENOMEGALY [None]
